FAERS Safety Report 17588316 (Version 1)
Quarter: 2020Q1

REPORT INFORMATION
  Report Type: Report from Study
  Country: None (occurrence: US)
  Receive Date: 20200327
  Receipt Date: 20200327
  Transmission Date: 20200409
  Serious: Yes (Other)
  Sender: FDA-Public Use
  Company Number: US-ABBVIE-20K-163-3336746-00

PATIENT
  Sex: Male

DRUGS (1)
  1. HUMIRA [Suspect]
     Active Substance: ADALIMUMAB
     Indication: CROHN^S DISEASE
     Route: 058
     Dates: end: 201910

REACTIONS (10)
  - Enteritis [Not Recovered/Not Resolved]
  - Drug tolerance increased [Unknown]
  - Abdominal adhesions [Unknown]
  - Abdominal distension [Unknown]
  - Small intestinal obstruction [Unknown]
  - Weight decreased [Not Recovered/Not Resolved]
  - Gastrointestinal pain [Unknown]
  - Volvulus of small bowel [Unknown]
  - Fat tissue decreased [Unknown]
  - Device difficult to use [Not Recovered/Not Resolved]

NARRATIVE: CASE EVENT DATE: 2019
